FAERS Safety Report 20009749 (Version 24)
Quarter: 2024Q4

REPORT INFORMATION
  Report Type: Report from Study
  Country: CA (occurrence: CA)
  Receive Date: 20211028
  Receipt Date: 20241225
  Transmission Date: 20250115
  Serious: Yes (Hospitalization, Other)
  Sender: HLS THERAPEUTICS
  Company Number: CA-HLS-202000264

PATIENT
  Age: 52 Year
  Sex: Female
  Weight: 101 kg

DRUGS (1)
  1. CLOZARIL [Suspect]
     Active Substance: CLOZAPINE
     Indication: Product used for unknown indication
     Dosage: UNKNOWN
     Route: 048
     Dates: start: 20100803

REACTIONS (44)
  - Neutropenia [Unknown]
  - Neutrophil count increased [Not Recovered/Not Resolved]
  - Blood pressure increased [Not Recovered/Not Resolved]
  - Constipation [Not Recovered/Not Resolved]
  - Hyperhidrosis [Recovered/Resolved]
  - Hyperhidrosis [Recovered/Resolved]
  - Dizziness [Recovered/Resolved]
  - Dizziness [Not Recovered/Not Resolved]
  - Dizziness [Recovered/Resolved]
  - Dizziness [Recovered/Resolved]
  - Headache [Recovered/Resolved]
  - Headache [Recovered/Resolved]
  - Headache [Recovered/Resolved]
  - Heart rate decreased [Recovered/Resolved]
  - Dyspepsia [Recovered/Resolved]
  - Hyperhidrosis [Recovered/Resolved]
  - Infection [Unknown]
  - Lethargy [Not Recovered/Not Resolved]
  - Dizziness [Recovered/Resolved]
  - Lymphocyte count decreased [Recovered/Resolved]
  - Mean cell haemoglobin concentration decreased [Not Recovered/Not Resolved]
  - Mean platelet volume increased [Not Recovered/Not Resolved]
  - Migraine [Not Recovered/Not Resolved]
  - Headache [Not Recovered/Not Resolved]
  - Nausea [Recovered/Resolved]
  - Sedation [Not Recovered/Not Resolved]
  - Salivary hypersecretion [Recovered/Resolved]
  - Tremor [Recovered/Resolved]
  - Monocyte count increased [Recovered/Resolved]
  - Nausea [Recovered/Resolved]
  - Nausea [Recovered/Resolved]
  - Neutrophil count increased [Recovered/Resolved]
  - Hyperhidrosis [Recovered/Resolved]
  - Treatment noncompliance [Not Recovered/Not Resolved]
  - Respiratory rate increased [Recovered/Resolved]
  - Salivary hypersecretion [Recovered/Resolved]
  - Rash [Not Recovered/Not Resolved]
  - Somnolence [Recovered/Resolved]
  - Oropharyngeal pain [Recovered/Resolved]
  - Tremor [Recovered/Resolved]
  - Tremor [Not Recovered/Not Resolved]
  - Urinary incontinence [Recovered/Resolved]
  - Vomiting [Recovered/Resolved]
  - White blood cell count increased [Unknown]

NARRATIVE: CASE EVENT DATE: 20200225
